FAERS Safety Report 5180976-8 (Version None)
Quarter: 2006Q4

REPORT INFORMATION
  Report Type: 
  Country: None (occurrence: None)
  Receive Date: 20061220
  Receipt Date: 20061208
  Transmission Date: 20070319
  Serious: Yes (Hospitalization)
  Sender: FDA-Public Use
  Company Number: PHFR2006GB03612

PATIENT
  Age: 57 Year

DRUGS (7)
  1. CARBAMAZEPINE [Suspect]
     Indication: EPILEPSY
     Dosage: 250 MG, BID
     Route: 048
     Dates: start: 20061113, end: 20061116
  2. CARBAMAZEPINE [Suspect]
     Dosage: 500 MG, BID
     Route: 048
     Dates: end: 20061112
  3. QUETIAPINE FUMARATE [Suspect]
     Indication: EPILEPSY
     Dosage: 150 MG, BID
     Route: 048
     Dates: start: 20061013
  4. LAMOTRIGINE [Concomitant]
     Indication: EPILEPSY
     Dosage: 100 MG, BID
     Route: 048
     Dates: start: 20061116
  5. PREGABALIN [Concomitant]
     Indication: EPILEPSY
     Dosage: 100 MG, BID
     Route: 048
     Dates: end: 20060901
  6. RISPERIDONE [Concomitant]
     Indication: SCHIZOPHRENIA
     Dosage: 1.5 MG, BID
     Route: 048
     Dates: end: 20061020
  7. VALPROATE SODIUM [Concomitant]
     Indication: EPILEPSY
     Dosage: 800 MG, BID
     Route: 048
     Dates: start: 20060920

REACTIONS (2)
  - HYPONATRAEMIA [None]
  - MENTAL IMPAIRMENT [None]
